FAERS Safety Report 8974359 (Version 1)
Quarter: 2012Q4

REPORT INFORMATION
  Report Type: Report from Study
  Country: NL (occurrence: NL)
  Receive Date: 20121220
  Receipt Date: 20121220
  Transmission Date: 20130627
  Serious: Yes (Hospitalization)
  Sender: FDA-Public Use
  Company Number: NL-ASTELLAS-2012EU011006

PATIENT
  Age: 62 Year
  Sex: Male
  Weight: 66 kg

DRUGS (14)
  1. TACROLIMUS SYSTEMIC [Suspect]
     Indication: RENAL TRANSPLANT
     Dosage: 16 mg, Unknown/D
     Route: 065
     Dates: start: 20090311
  2. RITUXIMAB [Suspect]
     Dosage: UNK
     Route: 042
     Dates: start: 20090311
  3. MYCOPHENOLATE MOFETIL [Concomitant]
     Dosage: 2000 mg, Unknown/D
     Route: 065
     Dates: start: 20090311
  4. MYCOPHENOLATE MOFETIL [Concomitant]
     Dosage: 1500 mg, Unknown/D
     Route: 065
  5. PARACETAMOL [Concomitant]
     Dosage: 4000 mg, Unknown/D
     Route: 065
     Dates: start: 20090321
  6. NIFEDIPIN [Concomitant]
     Dosage: 60 mg, Unknown/D
     Route: 065
     Dates: start: 20090314
  7. PANTOPRAZOLE [Concomitant]
     Dosage: 40 mg, Unknown/D
     Route: 065
     Dates: start: 20090311
  8. PERINDOPRIL [Concomitant]
     Dosage: 4 mg, Unknown/D
     Route: 065
     Dates: start: 20090323
  9. PERINDOPRIL [Concomitant]
     Dosage: 4 mg, Unknown/D
     Route: 065
     Dates: start: 20090325
  10. BIDIL [Concomitant]
     Dosage: UNK
     Route: 065
     Dates: start: 20090325
  11. ALFACALCIDOL [Concomitant]
     Dosage: UNK
     Route: 065
     Dates: start: 20090306
  12. HYDRALAZIN [Concomitant]
     Dosage: 100 mg, Unknown/D
     Route: 065
     Dates: start: 200903
  13. ISOSORBIDE MONONITRATE [Concomitant]
     Dosage: 60 mg, Unknown/D
     Route: 065
     Dates: start: 200903
  14. ASPIRIN [Concomitant]
     Dosage: UNK
     Route: 065

REACTIONS (1)
  - Bile duct stone [Recovered/Resolved]
